FAERS Safety Report 8307025-4 (Version None)
Quarter: 2012Q2

REPORT INFORMATION
  Report Type: 
  Country: None (occurrence: None)
  Receive Date: 20120424
  Receipt Date: 20120416
  Transmission Date: 20120825
  Serious: Yes (Other)
  Sender: FDA-Public Use
  Company Number: PHHY2012CA005552

PATIENT
  Sex: Male

DRUGS (3)
  1. SANDOSTATIN [Suspect]
     Indication: NEUROENDOCRINE TUMOUR
     Dosage: 100 UG, ONCE
     Route: 058
     Dates: start: 20120113
  2. SANDOSTATIN LAR [Suspect]
     Indication: NEUROENDOCRINE CARCINOMA
     Dosage: 30 MG, EVERY 4 WEEKS
     Route: 030
     Dates: start: 20120124
  3. MORPHINE [Concomitant]
     Indication: PAIN
     Dosage: 5 - 10 MG, PER NIGHT

REACTIONS (8)
  - THIRST DECREASED [None]
  - BOWEL MOVEMENT IRREGULARITY [None]
  - DIARRHOEA [None]
  - LETHARGY [None]
  - BLOOD GLUCOSE FLUCTUATION [None]
  - DECREASED APPETITE [None]
  - HYPERSOMNIA [None]
  - FLATULENCE [None]
